FAERS Safety Report 8173378-3 (Version None)
Quarter: 2012Q1

REPORT INFORMATION
  Report Type: 
  Country: None (occurrence: None)
  Receive Date: 20120229
  Receipt Date: 20120223
  Transmission Date: 20120608
  Serious: Yes (Death)
  Sender: FDA-Public Use
  Company Number: JP-ASTELLAS-2012JP001496

PATIENT
  Age: 76 Year
  Sex: Male

DRUGS (8)
  1. CYTARABINE [Concomitant]
     Route: 065
  2. CEFEPIME [Concomitant]
     Route: 065
  3. FUNGUARD [Suspect]
     Route: 065
  4. ITRACONAZOLE [Concomitant]
     Route: 065
  5. FLUCONAZOLE [Concomitant]
     Route: 048
  6. MEROPENEM [Concomitant]
     Route: 065
  7. AMPHOTERICIN B [Concomitant]
     Route: 065
  8. METHYLPREDNISOLONE [Concomitant]
     Route: 065

REACTIONS (2)
  - DRUG INEFFECTIVE [None]
  - MYOCARDITIS [None]
